FAERS Safety Report 10675886 (Version 2)
Quarter: 2015Q1

REPORT INFORMATION
  Report Type: Spontaneous
  Country: US (occurrence: US)
  Receive Date: 20141225
  Receipt Date: 20150113
  Transmission Date: 20150720
  Serious: Yes (Hospitalization)
  Sender: FDA-Public Use
  Company Number: US-BIOGENIDEC-2014BI134063

PATIENT
  Age: 56 Year
  Sex: Female

DRUGS (1)
  1. TECFIDERA [Suspect]
     Active Substance: DIMETHYL FUMARATE
     Indication: RELAPSING-REMITTING MULTIPLE SCLEROSIS

REACTIONS (4)
  - Laceration [Not Recovered/Not Resolved]
  - Haemorrhagic diathesis [Not Recovered/Not Resolved]
  - Confusional state [Not Recovered/Not Resolved]
  - Myocardial infarction [Recovered/Resolved]

NARRATIVE: CASE EVENT DATE: 2014
